FAERS Safety Report 13213705 (Version 1)
Quarter: 2017Q1

REPORT INFORMATION
  Report Type: Spontaneous
  Country: IT (occurrence: IT)
  Receive Date: 20170210
  Receipt Date: 20170210
  Transmission Date: 20170428
  Serious: Yes (Other)
  Sender: FDA-Public Use
  Company Number: IT-MYLANLABS-2017M1007911

PATIENT

DRUGS (1)
  1. MESALAZINE [Suspect]
     Active Substance: MESALAMINE
     Indication: COLITIS ULCERATIVE
     Dosage: UNK

REACTIONS (6)
  - Proctalgia [Unknown]
  - Headache [Unknown]
  - Vaginal infection [Unknown]
  - Anal fissure [Unknown]
  - Arthralgia [Unknown]
  - Colitis ulcerative [Unknown]
